FAERS Safety Report 16872061 (Version 2)
Quarter: 2019Q4

REPORT INFORMATION
  Report Type: Spontaneous
  Country: US (occurrence: US)
  Receive Date: 20191001
  Receipt Date: 20191025
  Transmission Date: 20200122
  Serious: No
  Sender: FDA-Public Use
  Company Number: US-AMGEN-USASP2019158527

PATIENT
  Age: 67 Year
  Sex: Female
  Weight: 76.64 kg

DRUGS (1)
  1. PROLIA [Suspect]
     Active Substance: DENOSUMAB
     Indication: OSTEOPOROSIS POSTMENOPAUSAL
     Dosage: UNK UNK, Q6MO
     Route: 065
     Dates: start: 2017

REACTIONS (5)
  - Osteoarthritis [Unknown]
  - Neuralgia [Unknown]
  - Muscle atrophy [Unknown]
  - Bursal fluid accumulation [Unknown]
  - Neuritis [Unknown]

NARRATIVE: CASE EVENT DATE: 2019
